FAERS Safety Report 16287591 (Version 2)
Quarter: 2019Q3

REPORT INFORMATION
  Report Type: Report from Study
  Country: US (occurrence: BR)
  Receive Date: 20190508
  Receipt Date: 20190903
  Transmission Date: 20191004
  Serious: Yes (Hospitalization, Other)
  Sender: FDA-Public Use
  Company Number: US-SUNOVION-2018SUN005126

PATIENT
  Age: 69 Year
  Sex: Female
  Weight: 70 kg

DRUGS (7)
  1. ALENIA [Concomitant]
     Indication: PRODUCT USED FOR UNKNOWN INDICATION
     Dosage: 12/400 UG,
     Route: 055
  2. INDACATEROL [Suspect]
     Active Substance: INDACATEROL
     Indication: ASTHMA
     Dosage: UNK
     Route: 055
  3. XOLAIR [Suspect]
     Active Substance: OMALIZUMAB
     Dosage: UNK
     Route: 058
     Dates: start: 20180723
  4. XOLAIR [Suspect]
     Active Substance: OMALIZUMAB
     Dosage: 600 MG, EVERY 4 WEEKS
     Route: 058
  5. DEXILANT [Concomitant]
     Active Substance: DEXLANSOPRAZOLE
  6. XOLAIR [Suspect]
     Active Substance: OMALIZUMAB
     Indication: ASTHMA
     Dosage: 600 MG, QMO
     Route: 058
     Dates: start: 20180502
  7. MONTELAIR [Concomitant]
     Active Substance: MONTELUKAST SODIUM

REACTIONS (17)
  - Asthma [Recovered/Resolved]
  - Cough [Recovered/Resolved]
  - Hypertension [Not Recovered/Not Resolved]
  - Dyspnoea [Recovered/Resolved]
  - Product use in unapproved indication [Unknown]
  - Nervousness [Not Recovered/Not Resolved]
  - Fatigue [Recovered/Resolved]
  - Asthma [Not Recovered/Not Resolved]
  - Pneumonia [Recovered/Resolved]
  - Asthmatic crisis [Recovered/Resolved]
  - Osteoarthritis [Not Recovered/Not Resolved]
  - Intervertebral disc protrusion [Not Recovered/Not Resolved]
  - Headache [Recovering/Resolving]
  - Dyspnoea [Recovered/Resolved]
  - Fatigue [Recovered/Resolved]
  - Pain [Not Recovered/Not Resolved]
  - Sensitivity to weather change [Unknown]

NARRATIVE: CASE EVENT DATE: 201808
